FAERS Safety Report 15505168 (Version 1)
Quarter: 2018Q4

REPORT INFORMATION
  Report Type: Spontaneous
  Country: US (occurrence: US)
  Receive Date: 20181010
  Receipt Date: 20181010
  Transmission Date: 20190205
  Serious: Yes (Other)
  Sender: FDA-Public Use
  Company Number: None

PATIENT
  Age: 43 Year
  Sex: Male
  Weight: 81 kg

DRUGS (4)
  1. LEVOFLOXACIN 750 MG [Suspect]
     Active Substance: LEVOFLOXACIN
     Indication: PNEUMONIA
     Route: 048
     Dates: start: 20180329, end: 20180404
  2. SPEARMINT. [Concomitant]
     Active Substance: SPEARMINT
  3. ST. JOHN^S WORTH [Concomitant]
  4. PEPPERMINT. [Concomitant]
     Active Substance: PEPPERMINT

REACTIONS (3)
  - Diarrhoea [None]
  - Infrequent bowel movements [None]
  - Abnormal faeces [None]
